FAERS Safety Report 7783857-6 (Version None)
Quarter: 2011Q3

REPORT INFORMATION
  Report Type: 
  Country: None (occurrence: None)
  Receive Date: 20110928
  Receipt Date: 20110923
  Transmission Date: 20111222
  Serious: Yes (Hospitalization)
  Sender: FDA-Public Use
  Company Number: US-GLAXOSMITHKLINE-A0845520A

PATIENT
  Age: 39 Year
  Sex: Male
  Weight: 139.1 kg

DRUGS (2)
  1. AVANDIA [Suspect]
     Indication: TYPE 2 DIABETES MELLITUS
     Dosage: 4MG TWICE PER DAY
     Route: 048
     Dates: start: 20040801, end: 20060201
  2. AVANDAMET [Suspect]
     Indication: TYPE 2 DIABETES MELLITUS
     Dosage: 1TAB TWICE PER DAY
     Route: 048
     Dates: start: 20061201, end: 20090101

REACTIONS (4)
  - CARDIAC FAILURE CONGESTIVE [None]
  - DISABILITY [None]
  - CARDIAC DISORDER [None]
  - ARRHYTHMIA [None]
